FAERS Safety Report 4960695-0 (Version None)
Quarter: 2006Q2

REPORT INFORMATION
  Report Type: 
  Country: None (occurrence: None)
  Receive Date: 20060403
  Receipt Date: 20050420
  Transmission Date: 20061013
  Serious: Yes (Other)
  Sender: FDA-Public Use
  Company Number: US-MERCK-0504USA03960

PATIENT
  Sex: Male
  Weight: 102 kg

DRUGS (2)
  1. VIOXX [Suspect]
     Indication: ARTHRALGIA
     Route: 048
     Dates: start: 19990825, end: 20000216
  2. VIOXX [Suspect]
     Indication: BACK PAIN
     Route: 048
     Dates: start: 19990825, end: 20000216

REACTIONS (3)
  - ARTERIAL STENT INSERTION [None]
  - MYOCARDIAL INFARCTION [None]
  - SPORTS INJURY [None]
